FAERS Safety Report 9296762 (Version 1)
Quarter: 2013Q2

REPORT INFORMATION
  Report Type: Spontaneous
  Country: US (occurrence: US)
  Receive Date: 20130517
  Receipt Date: 20130517
  Transmission Date: 20140414
  Serious: Yes (Hospitalization)
  Sender: FDA-Public Use
  Company Number: US-US-EMD SERONO, INC.-7093851

PATIENT
  Age: 53 Year
  Sex: Female
  Weight: 70 kg

DRUGS (2)
  1. REBIF [Suspect]
     Indication: PRODUCT USED FOR UNKNOWN INDICATION
     Route: 058
     Dates: start: 20111018, end: 201112
  2. VERAPAMIL [Concomitant]
     Indication: MIGRAINE

REACTIONS (5)
  - Transient ischaemic attack [Recovered/Resolved]
  - Nausea [Unknown]
  - Back pain [Unknown]
  - Arthralgia [Unknown]
  - Influenza like illness [Unknown]
